FAERS Safety Report 8196091-5 (Version None)
Quarter: 2012Q1

REPORT INFORMATION
  Report Type: 
  Country: None (occurrence: None)
  Receive Date: 20120309
  Receipt Date: 20120123
  Transmission Date: 20120608
  Serious: Yes (Hospitalization, Other)
  Sender: FDA-Public Use
  Company Number: JP-ACCORD-012623

PATIENT
  Age: 61 Year
  Sex: Male
  Weight: 50 kg

DRUGS (2)
  1. DOCETAXEL [Suspect]
  2. CISPLATIN [Suspect]

REACTIONS (2)
  - SUPERIOR MESENTERIC ARTERY SYNDROME [None]
  - VOMITING [None]
